FAERS Safety Report 8821871 (Version 2)
Quarter: 2012Q4

REPORT INFORMATION
  Report Type: 
  Country: DE (occurrence: DE)
  Receive Date: 20121002
  Receipt Date: 20121107
  Transmission Date: 20130627
  Serious: Yes (Hospitalization)
  Sender: FDA-Public Use
  Company Number: DE-PFIZER INC-2012238871

PATIENT
  Age: 74 Year
  Sex: Female
  Weight: 70 kg

DRUGS (14)
  1. GENOTROPIN [Suspect]
     Indication: GROWTH HORMONE DEFICIENCY
     Dosage: 0.1 mg/day, 7 injections/week
     Route: 058
     Dates: start: 20070226
  2. ESTRADIOL VALERATE [Concomitant]
     Indication: LH BLOOD DECREASED
     Dosage: UNK
     Dates: start: 19910215
  3. ESTRADIOL VALERATE [Concomitant]
     Indication: FSH DECREASED
  4. ESTRADIOL VALERATE [Concomitant]
     Indication: HYPOGONADISM FEMALE
  5. ESTRIOL [Concomitant]
     Indication: LH BLOOD DECREASED
     Dosage: UNK
     Dates: start: 19910201
  6. ESTRIOL [Concomitant]
     Indication: FSH DECREASED
  7. ESTRIOL [Concomitant]
     Indication: HYPOGONADISM FEMALE
  8. LEVONORGESTREL [Concomitant]
     Indication: LH BLOOD DECREASED
     Dosage: UNK
     Dates: start: 19910201
  9. LEVONORGESTREL [Concomitant]
     Indication: FSH DECREASED
  10. LEVONORGESTREL [Concomitant]
     Indication: HYPOGONADISM FEMALE
  11. TETANOL [Concomitant]
     Dosage: UNK
     Dates: start: 19960509
  12. HYDROCORTISONE [Concomitant]
     Indication: ACTH DECREASED
     Dosage: UNK
     Dates: start: 20000701
  13. ISOPTIN [Concomitant]
     Indication: CHRONIC ISCHAEMIC HEART DISEASE, UNSPECIFIED
     Dosage: UNK
     Dates: start: 20000510
  14. ACETYLSALICYLIC ACID [Concomitant]
     Indication: CHRONIC ISCHAEMIC HEART DISEASE, UNSPECIFIED
     Dosage: UNK
     Dates: start: 20000510

REACTIONS (1)
  - Herpes zoster [Unknown]
